FAERS Safety Report 14765860 (Version 1)
Quarter: 2018Q2

REPORT INFORMATION
  Report Type: Spontaneous
  Country: US (occurrence: US)
  Receive Date: 20180416
  Receipt Date: 20180416
  Transmission Date: 20180711
  Serious: No
  Sender: FDA-Public Use
  Company Number: US-ACTELION-A-NJ2018-168025

PATIENT
  Age: 86 Year
  Sex: Female

DRUGS (12)
  1. PRAVASTATIN. [Concomitant]
     Active Substance: PRAVASTATIN
     Dosage: 40 MG, QD
  2. TYLENOL [Concomitant]
     Active Substance: ACETAMINOPHEN
     Dosage: 650 MG, TID
  3. OPSUMIT [Suspect]
     Active Substance: MACITENTAN
     Indication: PULMONARY ARTERIAL HYPERTENSION
     Dosage: 10 MG, QD
     Route: 048
     Dates: start: 20171222
  4. OPSUMIT [Suspect]
     Active Substance: MACITENTAN
     Dosage: 10 MG, QD
     Route: 048
     Dates: start: 2018, end: 2018
  5. PROBIOTICS [Concomitant]
     Active Substance: PROBIOTICS NOS
     Dosage: QD
  6. CRANBERRY. [Concomitant]
     Active Substance: CRANBERRY
     Dosage: 500 MG, QD
  7. DIGOXIN. [Concomitant]
     Active Substance: DIGOXIN
     Dosage: .125 MG, QD
  8. PRESERVISION [Concomitant]
     Active Substance: MINERALS\VITAMINS
     Dosage: UNK, BID
  9. CARTIA XT [Concomitant]
     Active Substance: DILTIAZEM HYDROCHLORIDE
     Dosage: 120 MG, QD
  10. VITAMIN C [Concomitant]
     Active Substance: ASCORBIC ACID
     Dosage: 500 MG, QD
  11. ADCIRCA [Concomitant]
     Active Substance: TADALAFIL
     Dosage: 20 MG, QD
  12. VITAMIN D3 [Concomitant]
     Active Substance: CHOLECALCIFEROL
     Dosage: 2000 U, QD

REACTIONS (3)
  - Micturition urgency [Recovering/Resolving]
  - Peripheral swelling [Unknown]
  - Concomitant disease aggravated [Recovering/Resolving]

NARRATIVE: CASE EVENT DATE: 2018
